FAERS Safety Report 4388090-6 (Version None)
Quarter: 2004Q2

REPORT INFORMATION
  Report Type: 
  Country: None (occurrence: None)
  Receive Date: 20040629
  Receipt Date: 20040629
  Transmission Date: 20050107
  Serious: Yes (Other)
  Sender: FDA-Public Use
  Company Number: None

PATIENT
  Sex: Female
  Weight: 86.1834 kg

DRUGS (1)
  1. EFFEXOR [Suspect]
     Indication: DEPRESSION
     Dosage: 5 TAB DAILY
     Dates: start: 19980601, end: 20040628

REACTIONS (2)
  - DRUG DEPENDENCE [None]
  - NERVOUS SYSTEM DISORDER [None]
